FAERS Safety Report 7459241-1 (Version None)
Quarter: 2011Q2

REPORT INFORMATION
  Report Type: 
  Country: None (occurrence: None)
  Receive Date: 20110505
  Receipt Date: 20110421
  Transmission Date: 20111010
  Serious: Yes (Hospitalization)
  Sender: FDA-Public Use
  Company Number: FR-RANBAXY-2010RR-40933

PATIENT
  Age: 32 Year
  Sex: Male

DRUGS (7)
  1. AMOXICILLIN [Suspect]
     Indication: BRONCHITIS
     Dosage: UNK
     Route: 048
     Dates: start: 20101103, end: 20101110
  2. GLICLAZIDE [Suspect]
     Indication: DIABETES MELLITUS
     Dosage: 60 MG, UNK
     Route: 048
     Dates: start: 20100601, end: 20101125
  3. CLARITHROMYCIN [Suspect]
     Indication: BRONCHITIS
     Dosage: 1 G, UNK
     Route: 048
     Dates: start: 20101110, end: 20101115
  4. TAVANIC [Suspect]
     Indication: BRONCHITIS
     Dosage: 500 MG, UNK
     Route: 048
     Dates: start: 20101117, end: 20101123
  5. INSULIN [Concomitant]
  6. PARACETAMOL [Concomitant]
     Indication: HEADACHE
     Dosage: UNK
     Dates: start: 20101101
  7. OLMETEC [Concomitant]
     Dosage: UNK
     Dates: start: 20101110

REACTIONS (3)
  - HYPERBILIRUBINAEMIA [None]
  - HAEMOLYTIC ANAEMIA [None]
  - JAUNDICE [None]
